FAERS Safety Report 22154314 (Version 1)
Quarter: 2023Q1

REPORT INFORMATION
  Report Type: Spontaneous
  Country: US (occurrence: None)
  Receive Date: 20230330
  Receipt Date: 20230330
  Transmission Date: 20230418
  Serious: Yes (Other)
  Sender: FDA-Public Use
  Company Number: US-ROCHE-3315048

PATIENT
  Sex: Female

DRUGS (2)
  1. ZELBORAF [Suspect]
     Active Substance: VEMURAFENIB
     Indication: Malignant melanoma
     Route: 048
     Dates: start: 202204
  2. COTELLIC [Suspect]
     Active Substance: COBIMETINIB
     Indication: Malignant melanoma
     Route: 048
     Dates: start: 202204

REACTIONS (3)
  - Cardiac disorder [Unknown]
  - Hypertension [Unknown]
  - Cardiomyopathy [Unknown]
